FAERS Safety Report 9283810 (Version 2)
Quarter: 2013Q2

REPORT INFORMATION
  Report Type: Report from Study
  Country: IT (occurrence: IT)
  Receive Date: 20130510
  Receipt Date: 20130520
  Transmission Date: 20140414
  Serious: Yes (Other)
  Sender: FDA-Public Use
  Company Number: IT-JNJFOC-20130502865

PATIENT
  Sex: Female

DRUGS (1)
  1. DOXORUBICIN HYDROCHLORIDE [Suspect]
     Indication: BREAST CANCER
     Dosage: DOSE WAS 144 MG/ M2 RANGING FROM 20 TO 180 MG/M2
     Route: 042

REACTIONS (28)
  - Hypertension [Unknown]
  - Stomatitis [Unknown]
  - Infection [Unknown]
  - Rash [Unknown]
  - Palmar-plantar erythrodysaesthesia syndrome [Unknown]
  - Pain [Unknown]
  - Type III immune complex mediated reaction [Unknown]
  - Urogenital disorder [Unknown]
  - Decreased appetite [Unknown]
  - Thrombosis [Unknown]
  - Constipation [Unknown]
  - Diarrhoea [Unknown]
  - Gastritis [Unknown]
  - Mucosal inflammation [Unknown]
  - Nausea [Unknown]
  - Vomiting [Unknown]
  - Fatigue [Unknown]
  - Pyrexia [Unknown]
  - Infection [Unknown]
  - Alopecia [Unknown]
  - Rash [Unknown]
  - Palmar-plantar erythrodysaesthesia syndrome [Unknown]
  - Dizziness [Unknown]
  - Depressed mood [Unknown]
  - Osteoporosis [Unknown]
  - Pain [Unknown]
  - Adverse drug reaction [Unknown]
  - Renal disorder [Unknown]
